FAERS Safety Report 20483424 (Version 1)
Quarter: 2022Q1

REPORT INFORMATION
  Report Type: Spontaneous
  Country: US (occurrence: US)
  Receive Date: 20220217
  Receipt Date: 20220217
  Transmission Date: 20220423
  Serious: No
  Sender: FDA-Public Use
  Company Number: US-ORGANON-O2202USA001075

PATIENT
  Age: 17 Year
  Sex: Female
  Weight: 69.388 kg

DRUGS (2)
  1. NEXPLANON [Suspect]
     Active Substance: ETONOGESTREL
     Indication: Menstrual cycle management
     Dosage: 1 IMPLANT IN LEFT ARM
     Route: 059
     Dates: start: 20191030
  2. NEXPLANON [Suspect]
     Active Substance: ETONOGESTREL
     Indication: Contraception

REACTIONS (11)
  - Muscle spasms [Not Recovered/Not Resolved]
  - Abdominal distension [Not Recovered/Not Resolved]
  - Weight fluctuation [Not Recovered/Not Resolved]
  - Menstruation delayed [Recovered/Resolved]
  - Amenorrhoea [Recovered/Resolved]
  - Depression [Not Recovered/Not Resolved]
  - Mood altered [Not Recovered/Not Resolved]
  - Heavy menstrual bleeding [Not Recovered/Not Resolved]
  - Anxiety [Not Recovered/Not Resolved]
  - Implant site pain [Not Recovered/Not Resolved]
  - Product use in unapproved indication [Unknown]

NARRATIVE: CASE EVENT DATE: 20191030
